FAERS Safety Report 12326168 (Version 1)
Quarter: 2016Q2

REPORT INFORMATION
  Report Type: Spontaneous
  Country: US (occurrence: None)
  Receive Date: 20160502
  Receipt Date: 20160502
  Transmission Date: 20160815
  Serious: Yes (Disabling)
  Sender: FDA-Public Use
  Company Number: None

PATIENT
  Age: 55 Year
  Sex: Female
  Weight: 61.24 kg

DRUGS (11)
  1. FISH OIL [Concomitant]
     Active Substance: FISH OIL
  2. COQ10 [Concomitant]
     Active Substance: UBIDECARENONE
  3. CETIRIZINE HYDROCHLORIDE 10 MG, 10 MG CVS PHARMACY INC [Suspect]
     Active Substance: CETIRIZINE HYDROCHLORIDE
     Indication: MIGRAINE
     Route: 048
  4. INDOMETHICIN [Concomitant]
  5. ASPIRIN. [Concomitant]
     Active Substance: ASPIRIN
  6. MULTIVITAMIN [Concomitant]
     Active Substance: VITAMINS
  7. PROPRANOLOL [Concomitant]
     Active Substance: PROPRANOLOL\PROPRANOLOL HYDROCHLORIDE
  8. PRAVASTATIN [Concomitant]
     Active Substance: PRAVASTATIN\PRAVASTATIN SODIUM
  9. HOMEOPATHIC ACID REDUCER [Concomitant]
  10. CETIRIZINE HYDROCHLORIDE 10 MG, 10 MG CVS PHARMACY INC [Suspect]
     Active Substance: CETIRIZINE HYDROCHLORIDE
     Indication: MULTIPLE ALLERGIES
     Route: 048
  11. PROBIOTIC [Concomitant]
     Active Substance: PROBIOTICS NOS

REACTIONS (8)
  - Fear [None]
  - Nausea [None]
  - Sleep disorder [None]
  - Discomfort [None]
  - Pruritus [None]
  - Urticaria [None]
  - Anxiety [None]
  - Drug withdrawal syndrome [None]

NARRATIVE: CASE EVENT DATE: 20160422
